FAERS Safety Report 25901089 (Version 1)
Quarter: 2025Q4

REPORT INFORMATION
  Report Type: Spontaneous
  Country: US (occurrence: None)
  Receive Date: 20251008
  Receipt Date: 20251008
  Transmission Date: 20260117
  Serious: Yes (Hospitalization)
  Sender: FDA-CTU
  Company Number: None

PATIENT
  Sex: Female

DRUGS (2)
  1. SILDENAFIL CITRATE [Suspect]
     Active Substance: SILDENAFIL CITRATE
     Indication: Pulmonary arterial hypertension
     Dosage: 20 MG 3 TIMES A DAY ORAL
     Route: 048
     Dates: start: 20161109
  2. ELTROMBOPAG [Concomitant]
     Active Substance: ELTROMBOPAG

REACTIONS (3)
  - Disease progression [None]
  - Disease complication [None]
  - Laboratory test abnormal [None]
